FAERS Safety Report 8207234-9 (Version None)
Quarter: 2012Q1

REPORT INFORMATION
  Report Type: 
  Country: None (occurrence: None)
  Receive Date: 20120314
  Receipt Date: 20120306
  Transmission Date: 20120608
  Serious: No
  Sender: FDA-Public Use
  Company Number: US-PFIZER INC-2012043443

PATIENT
  Sex: Female

DRUGS (1)
  1. NORGESTREL AND ETHINYL ESTRADIOL [Suspect]

REACTIONS (2)
  - PRODUCT QUALITY ISSUE [None]
  - VAGINITIS BACTERIAL [None]
